FAERS Safety Report 21742965 (Version 3)
Quarter: 2022Q4

REPORT INFORMATION
  Report Type: Spontaneous
  Country: US (occurrence: US)
  Receive Date: 20221217
  Receipt Date: 20221228
  Transmission Date: 20230113
  Serious: No
  Sender: FDA-Public Use
  Company Number: US-UNITED THERAPEUTICS-UNT-2022-027840

PATIENT
  Sex: Female
  Weight: 56.689 kg

DRUGS (7)
  1. REMODULIN [Suspect]
     Active Substance: TREPROSTINIL
     Indication: Pulmonary arterial hypertension
     Dosage: UNK, CONTINUING
     Route: 058
     Dates: start: 20211116
  2. REMODULIN [Suspect]
     Active Substance: TREPROSTINIL
     Dosage: 0.0608 ?G/KG, CONTINUING (PRE-FILLED WITH 2.2 ML PER CASSETTE; RATE OF 23 MCL PER HOUR)
     Route: 058
  3. REMODULIN [Suspect]
     Active Substance: TREPROSTINIL
     Dosage: UNK, CONTINUING
     Route: 058
  4. REMODULIN [Suspect]
     Active Substance: TREPROSTINIL
     Dosage: 0.0556 ?G/KG, CONTINUING (PRE-FILLED WITH 2.2 ML PER CASSETTE; AT PUMP RATE OF 21 MCL PER HOUR)
     Route: 058
  5. REMODULIN [Suspect]
     Active Substance: TREPROSTINIL
     Dosage: UNK, CONTINUING
     Route: 058
  6. AMBRISENTAN [Concomitant]
     Active Substance: AMBRISENTAN
     Indication: Product used for unknown indication
     Route: 065
  7. ADCIRCA [Concomitant]
     Active Substance: TADALAFIL
     Indication: Pulmonary arterial hypertension
     Route: 065

REACTIONS (6)
  - Infusion site erythema [Unknown]
  - Infusion site reaction [Unknown]
  - Infusion site haemorrhage [Unknown]
  - Skin disorder [Unknown]
  - Infusion site rash [Unknown]
  - Infusion site pain [Unknown]
